FAERS Safety Report 5636813-8 (Version None)
Quarter: 2008Q1

REPORT INFORMATION
  Report Type: 
  Country: None (occurrence: None)
  Receive Date: 20080220
  Receipt Date: 20080220
  Transmission Date: 20080703
  Serious: Yes (Other)
  Sender: FDA-Public Use
  Company Number: None

PATIENT
  Sex: Male
  Weight: 77.1115 kg

DRUGS (1)
  1. LEVAQUIN [Suspect]
     Indication: SINUS DISORDER
     Dosage: 1 ONCE A DAY
     Dates: start: 20080201, end: 20080205

REACTIONS (4)
  - DRUG ERUPTION [None]
  - PRURITUS [None]
  - RASH GENERALISED [None]
  - URTICARIA [None]
